FAERS Safety Report 9419127 (Version 1)
Quarter: 2013Q3

REPORT INFORMATION
  Report Type: Spontaneous
  Country: US (occurrence: None)
  Receive Date: 20130722
  Receipt Date: 20130722
  Transmission Date: 20140515
  Serious: Yes (Other)
  Sender: FDA-Public Use
  Company Number: None

PATIENT
  Age: 66 Year
  Sex: Female

DRUGS (1)
  1. ANASTRAZOLE [Suspect]
     Indication: BREAST CANCER
     Dosage: ANASTRAZOLE 1MG DAILY PO
     Route: 048
     Dates: start: 20130601, end: 20130701

REACTIONS (8)
  - Dyspnoea [None]
  - Asthenia [None]
  - Dyspnoea exertional [None]
  - Asthenia [None]
  - Chest discomfort [None]
  - Chest pain [None]
  - Arthralgia [None]
  - Musculoskeletal stiffness [None]
